FAERS Safety Report 23514525 (Version 4)
Quarter: 2024Q2

REPORT INFORMATION
  Report Type: Spontaneous
  Country: US (occurrence: US)
  Receive Date: 20240212
  Receipt Date: 20240603
  Transmission Date: 20240716
  Serious: Yes (Other)
  Sender: FDA-Public Use
  Company Number: US-ELI_LILLY_AND_COMPANY-US202402002179

PATIENT
  Age: 52 Year
  Sex: Female

DRUGS (4)
  1. EMGALITY [Suspect]
     Active Substance: GALCANEZUMAB-GNLM
     Indication: Migraine
     Dosage: 120 MG, MONTHLY (1/M)
     Route: 058
     Dates: start: 202308
  2. EMGALITY [Suspect]
     Active Substance: GALCANEZUMAB-GNLM
     Indication: Migraine
  3. CARBOPLATIN [Suspect]
     Active Substance: CARBOPLATIN
     Indication: Thymic cancer metastatic
     Dosage: UNK UNK, UNKNOWN
     Route: 065
  4. PACLITAXEL [Suspect]
     Active Substance: PACLITAXEL
     Indication: Thymic cancer metastatic
     Dosage: UNK UNK, UNKNOWN
     Route: 065

REACTIONS (5)
  - Thymic cancer metastatic [Not Recovered/Not Resolved]
  - Haematological infection [Recovered/Resolved]
  - Anaphylactic shock [Recovered/Resolved]
  - COVID-19 [Recovered/Resolved]
  - Groin pain [Unknown]

NARRATIVE: CASE EVENT DATE: 20231001
